FAERS Safety Report 10003916 (Version 3)
Quarter: 2014Q2

REPORT INFORMATION
  Report Type: Spontaneous
  Country: GB (occurrence: GB)
  Receive Date: 20140312
  Receipt Date: 20140530
  Transmission Date: 20141212
  Serious: Yes (Life-Threatening, Hospitalization, Disabling, Other)
  Sender: FDA-Public Use
  Company Number: PHFR2014GB001489

PATIENT
  Age: 23 Year
  Sex: Male

DRUGS (5)
  1. CLOZARIL [Suspect]
     Dosage: UNK
     Route: 048
     Dates: start: 20101201
  2. CLOZARIL [Suspect]
     Dosage: 525 MG, UNK
     Route: 048
     Dates: end: 20140131
  3. CLOZARIL [Suspect]
     Dosage: UNK
     Route: 048
     Dates: start: 20140205
  4. LANSOPRAZOLE [Concomitant]
     Dosage: 30 MG, QD (MORNING)
  5. HYOSCINE HYDROBROMIDE [Concomitant]
     Dosage: 300 UG, UNK

REACTIONS (5)
  - Circulatory collapse [Recovered/Resolved]
  - Pneumonia aspiration [Recovered/Resolved]
  - White blood cell count increased [Recovered/Resolved]
  - Neutrophil count increased [Recovered/Resolved]
  - Platelet count decreased [Recovered/Resolved]
